FAERS Safety Report 14470274 (Version 1)
Quarter: 2018Q1

REPORT INFORMATION
  Report Type: Spontaneous
  Country: US (occurrence: US)
  Receive Date: 20180131
  Receipt Date: 20180131
  Transmission Date: 20180509
  Serious: Yes (Hospitalization)
  Sender: FDA-Public Use
  Company Number: US-GLAXOSMITHKLINE-US2018016364

PATIENT
  Age: 84 Year
  Sex: Female

DRUGS (17)
  1. ADVAIR DISKUS [Suspect]
     Active Substance: FLUTICASONE PROPIONATE\SALMETEROL XINAFOATE
     Indication: ASTHMA
     Dosage: 1 PUFF(S), BID
     Route: 055
     Dates: start: 2015
  2. HYDROCHLOROTHIAZIDE. [Concomitant]
     Active Substance: HYDROCHLOROTHIAZIDE
  3. VITAMIN C [Concomitant]
     Active Substance: ASCORBIC ACID
  4. ANASTROZOLE. [Concomitant]
     Active Substance: ANASTROZOLE
  5. OMEPRAZOLE. [Concomitant]
     Active Substance: OMEPRAZOLE
  6. LEVOTHYROXINE. [Concomitant]
     Active Substance: LEVOTHYROXINE
  7. METOPROLOL. [Concomitant]
     Active Substance: METOPROLOL
  8. MONTELUKAST [Concomitant]
     Active Substance: MONTELUKAST SODIUM
  9. PREDNISONE. [Concomitant]
     Active Substance: PREDNISONE
  10. XARELTO [Concomitant]
     Active Substance: RIVAROXABAN
  11. NEBULIZED ALBUTEROL [Concomitant]
     Active Substance: ALBUTEROL
  12. FORTEO [Concomitant]
     Active Substance: TERIPARATIDE
  13. GABAPENTIN. [Concomitant]
     Active Substance: GABAPENTIN
  14. COLACE [Concomitant]
     Active Substance: DOCUSATE SODIUM
  15. BENZONATATE. [Concomitant]
     Active Substance: BENZONATATE
  16. MIRTAZAPINE. [Concomitant]
     Active Substance: MIRTAZAPINE
  17. ATORVASTATIN [Concomitant]
     Active Substance: ATORVASTATIN

REACTIONS (2)
  - Dyspnoea [Recovering/Resolving]
  - Cough [Recovering/Resolving]

NARRATIVE: CASE EVENT DATE: 20180123
